FAERS Safety Report 4732029-8 (Version None)
Quarter: 2005Q3

REPORT INFORMATION
  Report Type: 
  Country: None (occurrence: None)
  Receive Date: 20050802
  Receipt Date: 20050523
  Transmission Date: 20060218
  Serious: Yes (Disabling, Other)
  Sender: FDA-Public Use
  Company Number: US-ABBOTT-05P-163-0301036-00

PATIENT
  Age: 51 Year
  Sex: Female

DRUGS (6)
  1. HUMIRA [Suspect]
     Indication: RHEUMATOID ARTHRITIS
     Route: 058
     Dates: start: 20031101, end: 20050303
  2. HYDROCODONE [Concomitant]
     Indication: PAIN
     Route: 048
  3. OXYBUTYNIN HYDROCHLORIDE [Concomitant]
     Indication: URINARY INCONTINENCE
     Route: 048
  4. DIPHENHYDRAMINE HCL [Concomitant]
     Indication: DRUG USE FOR UNKNOWN INDICATION
     Route: 048
  5. ETODOLAC [Concomitant]
     Indication: DRUG USE FOR UNKNOWN INDICATION
  6. MILK THISTLE [Concomitant]
     Indication: DRUG USE FOR UNKNOWN INDICATION

REACTIONS (3)
  - BLINDNESS [None]
  - CSF TEST ABNORMAL [None]
  - MULTIPLE SCLEROSIS [None]
